FAERS Safety Report 5288716-9 (Version None)
Quarter: 2007Q1

REPORT INFORMATION
  Report Type: 
  Country: None (occurrence: None)
  Receive Date: 20070330
  Receipt Date: 20070322
  Transmission Date: 20070707
  Serious: Yes (Other)
  Sender: FDA-Public Use
  Company Number: 2007SP000530

PATIENT
  Age: 48 Year
  Sex: Female

DRUGS (7)
  1. DESLORATADINE [Suspect]
     Indication: NASOPHARYNGITIS
     Dosage: 1 DF;QD;PO
     Route: 048
     Dates: start: 20060424, end: 20060424
  2. DERINOX (NO PREF. NAME) [Suspect]
     Indication: NASOPHARYNGITIS
     Dosage: NAS
     Route: 045
     Dates: start: 20060424, end: 20060424
  3. EXOMUC (ACETYLCYSTEINE) [Suspect]
     Indication: NASOPHARYNGITIS
     Dosage: 1 DF;BID;PO
     Route: 048
     Dates: start: 20060424, end: 20060424
  4. PROZAC [Concomitant]
  5. COUMADIN [Concomitant]
  6. LEVOTHYROXINE SODIUM [Concomitant]
  7. TAKETIAN [Concomitant]

REACTIONS (4)
  - BRONCHOSPASM [None]
  - DYSPNOEA [None]
  - EOSINOPHILIA [None]
  - INCORRECT DOSE ADMINISTERED [None]
